FAERS Safety Report 7889024-X (Version None)
Quarter: 2011Q4

REPORT INFORMATION
  Report Type: 
  Country: None (occurrence: None)
  Receive Date: 20111103
  Receipt Date: 20111021
  Transmission Date: 20120403
  Serious: Yes (Death, Hospitalization, Other)
  Sender: FDA-Public Use
  Company Number: JP-ROCHE-772207

PATIENT
  Sex: Male
  Weight: 54 kg

DRUGS (13)
  1. AVASTIN [Suspect]
     Indication: COLON CANCER METASTATIC
     Route: 041
     Dates: start: 20101104, end: 20110104
  2. NOVOLIN R [Concomitant]
     Dosage: DOSAGE IS UNCERTAIN. DRUG NAME: NOVOLIN R(INSULIN HUMAN(GENETICAL RECOMBINATION))
     Route: 058
     Dates: start: 20101030, end: 20110226
  3. LEVOLEUCOVORIN CALCIUM [Concomitant]
     Dosage: DOSAGE IS UNCERTAIN.
     Route: 041
  4. CANDESARTAN CILEXETIL [Concomitant]
     Indication: HYPERTENSION
     Route: 048
     Dates: start: 20101102, end: 20110226
  5. NAPROXEN [Concomitant]
     Route: 048
     Dates: start: 20101102, end: 20110226
  6. OXALIPLATIN [Concomitant]
     Route: 041
     Dates: start: 20101104, end: 20110101
  7. FLUOROURACIL [Concomitant]
     Route: 040
     Dates: start: 20101222, end: 20110101
  8. OMEPRAZOLE [Concomitant]
     Route: 048
     Dates: start: 20101104, end: 20110226
  9. LANTUS [Concomitant]
     Dosage: DOSAGE IS UNCERTAIN. DRUG NAME: LANTUS(INSULIN GLARGINE(GENETICAL RECOMBINATION))
     Route: 058
     Dates: start: 20101030, end: 20110226
  10. FLUOROURACIL [Concomitant]
     Indication: COLON CANCER METASTATIC
     Route: 040
     Dates: start: 20101104, end: 20101118
  11. FLUOROURACIL [Concomitant]
  12. AMLODIPINE [Concomitant]
     Dosage: DRUG: AMLODIN(AMLODIPINE BESILATE)
     Route: 048
     Dates: start: 20101030, end: 20110226
  13. MAGMITT [Concomitant]
     Route: 048
     Dates: start: 20101105, end: 20110226

REACTIONS (4)
  - PULMONARY FISTULA [None]
  - DEVICE RELATED INFECTION [None]
  - SHOCK [None]
  - AORTIC DISSECTION RUPTURE [None]
